FAERS Safety Report 9523680 (Version 3)
Quarter: 2013Q4

REPORT INFORMATION
  Report Type: Report from Study
  Country: CA (occurrence: CA)
  Receive Date: 20130913
  Receipt Date: 20131104
  Transmission Date: 20140711
  Serious: Yes (Hospitalization)
  Sender: FDA-Public Use
  Company Number: CA-ROCHE-1245157

PATIENT
  Age: 57 Year
  Sex: Female
  Weight: 64 kg

DRUGS (8)
  1. PERJETA [Suspect]
     Indication: BREAST CANCER METASTATIC
     Route: 042
     Dates: start: 20130606, end: 20130606
  2. PERJETA [Suspect]
     Route: 042
     Dates: start: 20130702
  3. HERCEPTIN [Suspect]
     Indication: BREAST CANCER METASTATIC
     Route: 065
  4. TAXOTERE [Suspect]
     Indication: BREAST CANCER METASTATIC
     Route: 042
  5. AMOXICILLIN/CLAVULANIC ACID [Concomitant]
     Indication: BACTERIAL INFECTION
  6. CIPROFLOXACIN [Concomitant]
     Indication: BACTERIAL INFECTION
  7. NEUPOGEN [Concomitant]
     Indication: NEUTROPENIA
     Route: 058
  8. ASACOL [Concomitant]
     Route: 065

REACTIONS (6)
  - Full blood count decreased [Recovered/Resolved]
  - Neutrophil count decreased [Recovered/Resolved]
  - Anxiety [Recovering/Resolving]
  - Back pain [Not Recovered/Not Resolved]
  - Spinal disorder [Not Recovered/Not Resolved]
  - Diarrhoea [Not Recovered/Not Resolved]
